FAERS Safety Report 10371804 (Version 1)
Quarter: 2014Q3

REPORT INFORMATION
  Report Type: Spontaneous
  Country: US (occurrence: US)
  Receive Date: 20140808
  Receipt Date: 20140808
  Transmission Date: 20150326
  Serious: No
  Sender: FDA-Public Use
  Company Number: US-PFIZER INC-2014217559

PATIENT
  Sex: Female

DRUGS (3)
  1. CLINDAMYCIN HCL [Suspect]
     Active Substance: CLINDAMYCIN HYDROCHLORIDE
     Dosage: UNK
  2. HYDROCODONE [Suspect]
     Active Substance: HYDROCODONE
     Indication: GINGIVAL PAIN
     Dosage: UNK
     Dates: start: 20140801
  3. ADVIL [Suspect]
     Active Substance: IBUPROFEN
     Indication: GINGIVAL PAIN
     Dosage: 2 LIQUI-GELS, UNK
     Dates: start: 20140801

REACTIONS (9)
  - Erythema [Unknown]
  - Swelling face [Unknown]
  - Dysphagia [Unknown]
  - Malaise [Unknown]
  - Pain [Unknown]
  - Lip swelling [Unknown]
  - Speech disorder [Unknown]
  - Swelling [Unknown]
  - Jaw disorder [Unknown]

NARRATIVE: CASE EVENT DATE: 20140802
